FAERS Safety Report 11680385 (Version 3)
Quarter: 2015Q4

REPORT INFORMATION
  Report Type: Spontaneous
  Country: US (occurrence: US)
  Receive Date: 20151027
  Receipt Date: 20151110
  Transmission Date: 20160304
  Serious: No
  Sender: FDA-Public Use
  Company Number: US-ELI_LILLY_AND_COMPANY-US201007003878

PATIENT
  Age: 70 Year
  Sex: Female

DRUGS (2)
  1. FORTEO [Suspect]
     Active Substance: TERIPARATIDE
     Dosage: 20 UG, QD
     Route: 058
  2. FORTEO [Suspect]
     Active Substance: TERIPARATIDE
     Indication: OSTEOPOROSIS
     Dosage: 20 UG, QD
     Route: 058
     Dates: start: 20100511

REACTIONS (14)
  - Bladder disorder [Recovering/Resolving]
  - Musculoskeletal pain [Unknown]
  - Tooth disorder [Unknown]
  - Arthritis [Unknown]
  - Back pain [Unknown]
  - Arthralgia [Unknown]
  - Bone pain [Unknown]
  - Malpositioned teeth [Unknown]
  - Micturition urgency [Recovering/Resolving]
  - Oedema peripheral [Unknown]
  - Bronchitis [Unknown]
  - Urinary incontinence [Recovering/Resolving]
  - Tooth demineralisation [Unknown]
  - Emphysema [Unknown]

NARRATIVE: CASE EVENT DATE: 201006
